FAERS Safety Report 18491407 (Version 2)
Quarter: 2024Q4

REPORT INFORMATION
  Report Type: Spontaneous
  Country: IT (occurrence: IT)
  Receive Date: 20201111
  Receipt Date: 20241231
  Transmission Date: 20250115
  Serious: Yes (Other)
  Sender: MYLAN
  Company Number: IT-SUN PHARMACEUTICAL INDUSTRIES LTD-2020RR-260696

PATIENT
  Age: 71 Year
  Sex: Male

DRUGS (11)
  1. LINEZOLID [Suspect]
     Active Substance: LINEZOLID
     Indication: Antibiotic therapy
     Dosage: UNK
     Route: 065
  2. AZITHROMYCIN [Interacting]
     Active Substance: AZITHROMYCIN
     Indication: COVID-19
     Dosage: 500 MILLIGRAM, DAILY
     Route: 065
  3. LOPINAVIR\RITONAVIR [Suspect]
     Active Substance: LOPINAVIR\RITONAVIR
     Indication: COVID-19
     Dosage: UNK
     Route: 065
  4. COBICISTAT\DARUNAVIR ETHANOLATE [Suspect]
     Active Substance: COBICISTAT\DARUNAVIR ETHANOLATE
     Indication: COVID-19
     Dosage: UNK
     Route: 065
  5. VITAMIN C [Suspect]
     Active Substance: ASCORBIC ACID
     Indication: COVID-19
     Dosage: 50 MILLIGRAM/KILOGRAM, QID, HIGH-DOSE
     Route: 042
  6. HYDROXYCHLOROQUINE [Interacting]
     Active Substance: HYDROXYCHLOROQUINE
     Indication: COVID-19
     Dosage: 400 MG, BID (2/DAY)
     Route: 065
  7. OXACILLIN [Concomitant]
     Active Substance: OXACILLIN SODIUM
     Indication: Antibiotic therapy
     Dosage: UNK
     Route: 065
  8. PIPERACILLIN SODIUM\TAZOBACTAM SODIUM [Concomitant]
     Active Substance: PIPERACILLIN SODIUM\TAZOBACTAM SODIUM
     Indication: Antibiotic therapy
     Dosage: UNK
     Route: 065
  9. CEFTRIAXONE [Concomitant]
     Active Substance: CEFTRIAXONE
     Indication: Antibiotic therapy
     Dosage: UNK
     Route: 065
  10. MEROPENEM [Concomitant]
     Active Substance: MEROPENEM
     Indication: Antibiotic therapy
     Dosage: UNK
     Route: 065
  11. DAPTOMYCIN [Concomitant]
     Active Substance: DAPTOMYCIN
     Indication: Antibiotic therapy
     Dosage: UNK
     Route: 065

REACTIONS (8)
  - Bacteraemia [Unknown]
  - Acute kidney injury [Recovering/Resolving]
  - Anaemia [Unknown]
  - Drug interaction [Unknown]
  - Hypotension [Unknown]
  - Platelet count decreased [Unknown]
  - Product use issue [Unknown]
  - Off label use [Unknown]
